FAERS Safety Report 7876626-X (Version None)
Quarter: 2011Q4

REPORT INFORMATION
  Report Type: 
  Country: None (occurrence: None)
  Receive Date: 20111031
  Receipt Date: 20100428
  Transmission Date: 20120403
  Serious: No
  Sender: FDA-Public Use
  Company Number: US-BAYER-201021091NA

PATIENT
  Sex: Male

DRUGS (2)
  1. AVELOX [Suspect]
     Indication: SINUS DISORDER
  2. AVELOX [Suspect]
     Indication: OROPHARYNGEAL PAIN

REACTIONS (1)
  - ASTHENIA [None]
